FAERS Safety Report 5926349-9 (Version None)
Quarter: 2008Q4

REPORT INFORMATION
  Report Type: 
  Country: None (occurrence: None)
  Receive Date: 20081017
  Receipt Date: 20081009
  Transmission Date: 20090506
  Serious: Yes (Other)
  Sender: FDA-Public Use
  Company Number: GXKR2007AT09153

PATIENT
  Age: 66 Year
  Sex: Male
  Weight: 81 kg

DRUGS (5)
  1. SIMVASTATIN [Suspect]
     Indication: HYPERCHOLESTEROLAEMIA
     Dosage: 40 MG/DAY, ORAL
     Route: 048
     Dates: start: 20070401, end: 20070806
  2. EZETIMIBE [Suspect]
     Indication: HYPERCHOLESTEROLAEMIA
     Dosage: 1 DF/DAY, ORAL
     Route: 048
     Dates: start: 20070701, end: 20070806
  3. MONOKET [Concomitant]
  4. ACETYLSALICYLIC ACID SRT [Concomitant]
  5. NITROGLYCERIN [Concomitant]

REACTIONS (4)
  - ALOPECIA [None]
  - EYE SWELLING [None]
  - HAIR COLOUR CHANGES [None]
  - HAIR TEXTURE ABNORMAL [None]
